FAERS Safety Report 11567266 (Version 1)
Quarter: 2015Q3

REPORT INFORMATION
  Report Type: Spontaneous
  Country: US (occurrence: US)
  Receive Date: 20150916
  Receipt Date: 20150916
  Transmission Date: 20151125
  Serious: No
  Sender: FDA-Public Use
  Company Number: US-ELI_LILLY_AND_COMPANY-US200907003100

PATIENT
  Sex: Female

DRUGS (2)
  1. CALCIUM [Concomitant]
     Active Substance: CALCIUM
     Dosage: 1624 MG, UNK
  2. FORTEO [Suspect]
     Active Substance: TERIPARATIDE

REACTIONS (4)
  - Asthenia [Not Recovered/Not Resolved]
  - Injection site erythema [Unknown]
  - Fatigue [Not Recovered/Not Resolved]
  - Injection site pruritus [Unknown]

NARRATIVE: CASE EVENT DATE: 200907
